FAERS Safety Report 16121960 (Version 1)
Quarter: 2019Q1

REPORT INFORMATION
  Report Type: Spontaneous
  Country: US (occurrence: US)
  Receive Date: 20190327
  Receipt Date: 20190327
  Transmission Date: 20190418
  Serious: No
  Sender: FDA-Public Use
  Company Number: US-PFIZER INC-2019125329

PATIENT
  Age: 83 Year
  Sex: Female

DRUGS (2)
  1. FULVESTRANT. [Concomitant]
     Active Substance: FULVESTRANT
     Dosage: UNK
  2. IBRANCE [Suspect]
     Active Substance: PALBOCICLIB
     Indication: BREAST CANCER METASTATIC
     Dosage: UNK
     Dates: start: 201812

REACTIONS (6)
  - Alopecia [Unknown]
  - Agitation [Unknown]
  - Depression [Unknown]
  - Toothache [Unknown]
  - Memory impairment [Unknown]
  - Arthralgia [Unknown]
